FAERS Safety Report 8198270-X (Version None)
Quarter: 2012Q1

REPORT INFORMATION
  Report Type: 
  Country: None (occurrence: None)
  Receive Date: 20120309
  Receipt Date: 20120301
  Transmission Date: 20120608
  Serious: Yes (Other)
  Sender: FDA-Public Use
  Company Number: PHHY2012MX018570

PATIENT
  Sex: Female

DRUGS (7)
  1. STALEVO 100 [Suspect]
     Indication: PARKINSON'S DISEASE
     Dosage: 0.5 DF, QD (100/25/200 MG)
     Dates: start: 20101001
  2. PROTALGINE [Concomitant]
     Dosage: 1 DF, QD
     Route: 048
     Dates: start: 20111101
  3. LEVOTHYROXINE SODIUM [Concomitant]
     Indication: HYPERTHYROIDISM
     Dosage: 0.5 DF, QD
     Dates: start: 20111201
  4. BISOPROLOL FUMARATE AND HYDROCHLOROTHIAZIDE [Concomitant]
     Dosage: 0.5 DF, QD
     Dates: start: 20101101
  5. QUETIAPINE [Concomitant]
     Dosage: 0.5 DF, QD
     Dates: start: 20110301
  6. ASPIRIN [Concomitant]
     Indication: HYPERTENSION
     Dosage: 1 DF, QD
     Dates: start: 20101101
  7. AKATINOL [Concomitant]
     Dosage: 1 DF, QD
     Dates: start: 20111101

REACTIONS (6)
  - DEMENTIA [None]
  - HALLUCINATION, VISUAL [None]
  - DRUG ADMINISTRATION ERROR [None]
  - PUBIS FRACTURE [None]
  - WEIGHT DECREASED [None]
  - MOVEMENT DISORDER [None]
